FAERS Safety Report 7927024-1 (Version None)
Quarter: 2011Q4

REPORT INFORMATION
  Report Type: 
  Country: None (occurrence: None)
  Receive Date: 20111118
  Receipt Date: 20111114
  Transmission Date: 20120403
  Serious: Yes (Hospitalization)
  Sender: FDA-Public Use
  Company Number: IT-BRISTOL-MYERS SQUIBB COMPANY-16193245

PATIENT
  Age: 63 Year
  Sex: Female

DRUGS (9)
  1. COUMADIN [Suspect]
     Indication: ATRIAL FIBRILLATION
     Dosage: 1DF=1 UNIT INTERRU1PTED ON 04MAY2011
     Route: 048
     Dates: start: 20080101
  2. NOVORAPID [Concomitant]
  3. DELORAZEPAM [Concomitant]
     Dosage: 1DF=14 DROPS
  4. LASIX [Concomitant]
     Dosage: 1DF= 6UNITS
  5. RAMIPRIL [Concomitant]
     Indication: HYPERTENSION
     Dosage: 1DF=1 UNIT
  6. OMEPRAZOLE [Concomitant]
     Dosage: 1DF=1 UNIT
  7. LANTUS [Concomitant]
     Indication: DIABETES MELLITUS
  8. CONGESCOR [Concomitant]
  9. ZOLOFT [Concomitant]
     Indication: DEPRESSION

REACTIONS (2)
  - GASTROINTESTINAL HAEMORRHAGE [None]
  - ANAEMIA [None]
